FAERS Safety Report 5588793-1 (Version None)
Quarter: 2008Q1

REPORT INFORMATION
  Report Type: 
  Country: None (occurrence: None)
  Receive Date: 20080111
  Receipt Date: 20071129
  Transmission Date: 20080703
  Serious: Yes (Hospitalization, Disabling)
  Sender: FDA-Public Use
  Company Number: B0502382A

PATIENT
  Age: 21 Year
  Sex: Female

DRUGS (1)
  1. LAMICTAL [Suspect]
     Indication: EPILEPSY
     Route: 048
     Dates: start: 20050718, end: 20050101

REACTIONS (9)
  - ALOPECIA [None]
  - BLINDNESS UNILATERAL [None]
  - BURNING SENSATION [None]
  - DELIRIUM [None]
  - GENERAL PHYSICAL HEALTH DETERIORATION [None]
  - HEADACHE [None]
  - PYREXIA [None]
  - SENSORY LOSS [None]
  - TOXIC EPIDERMAL NECROLYSIS [None]
